FAERS Safety Report 4555140-3 (Version None)
Quarter: 2005Q1

REPORT INFORMATION
  Report Type: 
  Country: None (occurrence: None)
  Receive Date: 20041228
  Receipt Date: 20040612
  Transmission Date: 20050727
  Serious: Yes (Death, Other)
  Sender: FDA-Public Use
  Company Number: PHEH2004US06437

PATIENT
  Age: 57 Year
  Sex: Female
  Weight: 44 kg

DRUGS (5)
  1. AREDIA [Suspect]
     Indication: MULTIPLE MYELOMA
     Dosage: 90 MG, QMO
  2. ZOMETA [Suspect]
     Indication: MULTIPLE MYELOMA
     Dosage: 4 MG, QMO
  3. VELCADE [Concomitant]
  4. THALIDOMIDE (THALIDOMIDE) [Concomitant]
  5. DECADRON [Concomitant]

REACTIONS (5)
  - DISEASE PROGRESSION [None]
  - MULTIPLE MYELOMA [None]
  - ORAL PAIN [None]
  - OSTEONECROSIS [None]
  - TOOTH EXTRACTION [None]
